FAERS Safety Report 19139579 (Version 1)
Quarter: 2021Q2

REPORT INFORMATION
  Report Type: Spontaneous
  Country: CA (occurrence: CA)
  Receive Date: 20210415
  Receipt Date: 20210415
  Transmission Date: 20210717
  Serious: Yes (Hospitalization, Other)
  Sender: FDA-Public Use
  Company Number: CA-PFIZER INC-2021381383

PATIENT
  Age: 58 Year
  Sex: Female
  Weight: 68 kg

DRUGS (7)
  1. OXALIPLATIN. [Suspect]
     Active Substance: OXALIPLATIN
     Indication: RECTOSIGMOID CANCER METASTATIC
     Dosage: UNK, CYCLIC (1 EVERY 2 WEEKS)
     Route: 042
  2. DECADRON [Concomitant]
     Active Substance: DEXAMETHASONE
  3. KYTRIL [Concomitant]
     Active Substance: GRANISETRON HYDROCHLORIDE
  4. OXALIPLATIN. [Suspect]
     Active Substance: OXALIPLATIN
     Dosage: UNK, CYCLIC (1 EVERY 2 WEEKS)
  5. AMLODIPINE [Concomitant]
     Active Substance: AMLODIPINE BESYLATE
  6. VENLAFAXINE XR [Concomitant]
     Active Substance: VENLAFAXINE HYDROCHLORIDE
  7. LEUCOVORIN. [Suspect]
     Active Substance: LEUCOVORIN
     Indication: RECTOSIGMOID CANCER METASTATIC
     Dosage: 1 DF 1 EVERY 2 WEEKS
     Route: 051

REACTIONS (8)
  - Feeling abnormal [Recovered/Resolved]
  - Oxygen saturation decreased [Recovered/Resolved]
  - Nausea [Recovered/Resolved]
  - Fatigue [Recovered/Resolved]
  - Hyporesponsive to stimuli [Recovered/Resolved]
  - Pyelonephritis [Recovered/Resolved]
  - Erythema [Recovered/Resolved]
  - Febrile neutropenia [Recovered/Resolved]
